FAERS Safety Report 5077738-9 (Version None)
Quarter: 2006Q3

REPORT INFORMATION
  Report Type: 
  Country: None (occurrence: None)
  Receive Date: 20060810
  Receipt Date: 20060802
  Transmission Date: 20061208
  Serious: Yes (Death, Hospitalization)
  Sender: FDA-Public Use
  Company Number: BR-ABBOTT-06P-020-0339655-00

PATIENT
  Sex: Male

DRUGS (3)
  1. HUMIRA [Suspect]
     Indication: RHEUMATOID ARTHRITIS
     Route: 058
     Dates: start: 20051101, end: 20060701
  2. INSULIN [Concomitant]
     Indication: DIABETES MELLITUS
     Route: 058
  3. ANTICOAGULANT [Concomitant]
     Indication: ANGIOPLASTY

REACTIONS (3)
  - BLOOD GLUCOSE INCREASED [None]
  - HAEMORRHAGE [None]
  - INFARCTION [None]
